FAERS Safety Report 7929990-7 (Version None)
Quarter: 2011Q4

REPORT INFORMATION
  Report Type: 
  Country: None (occurrence: None)
  Receive Date: 20111117
  Receipt Date: 20111102
  Transmission Date: 20120403
  Serious: Yes (Hospitalization)
  Sender: FDA-Public Use
  Company Number: 2011MA016019

PATIENT
  Age: 3 Day
  Sex: Female

DRUGS (3)
  1. PRENATAL MULTIVITAMINS [Suspect]
     Indication: PREGNANCY
  2. BUPROPION HYDROCHLORIDE (WELLBUTRIN XL) [Suspect]
     Indication: DEPRESSION
     Dosage: 75 MG;QD
  3. BUPROPION HYDROCHLORIDE (WELLBUTRIN XL) [Suspect]
     Indication: ANXIETY
     Dosage: 75 MG;QD

REACTIONS (9)
  - CONVULSION NEONATAL [None]
  - BECKWITH-WIEDEMANN SYNDROME [None]
  - GRAND MAL CONVULSION [None]
  - HYPERINSULINISM [None]
  - CAESAREAN SECTION [None]
  - FEEDING DISORDER NEONATAL [None]
  - MATERNAL DRUGS AFFECTING FOETUS [None]
  - LETHARGY [None]
  - HYPOGLYCAEMIA NEONATAL [None]
